FAERS Safety Report 24554558 (Version 2)
Quarter: 2024Q4

REPORT INFORMATION
  Report Type: Spontaneous
  Country: US (occurrence: US)
  Receive Date: 20241028
  Receipt Date: 20241112
  Transmission Date: 20250115
  Serious: Yes (Death, Hospitalization)
  Sender: RECORDATI
  Company Number: US-RECORDATI RARE DISEASE INC.-2024008186

PATIENT

DRUGS (24)
  1. ISTURISA [Suspect]
     Active Substance: OSILODROSTAT PHOSPHATE
     Indication: Ectopic ACTH syndrome
     Dosage: 2 MG, BID
     Route: 048
     Dates: start: 20240505
  2. ISTURISA [Suspect]
     Active Substance: OSILODROSTAT PHOSPHATE
     Indication: Off label use
  3. ASPIRIN [Concomitant]
     Active Substance: ASPIRIN
     Indication: Product used for unknown indication
     Dosage: 81 MG, QD, (LOW DOSE DELAYED TABLET)
     Route: 048
     Dates: start: 20230503
  4. CALCIUM CITRATE [Concomitant]
     Active Substance: CALCIUM CITRATE
     Indication: Product used for unknown indication
     Dosage: 250 MG, BID, TABLET
     Route: 048
     Dates: start: 20230503
  5. CARBOPLATIN [Concomitant]
     Active Substance: CARBOPLATIN
     Indication: Product used for unknown indication
     Dosage: 450 MG/45 ML, ONCE A MONTH (SOLUTION)
     Route: 042
     Dates: start: 20240301
  6. CARVEDILOL [Concomitant]
     Active Substance: CARVEDILOL
     Indication: Product used for unknown indication
     Dosage: 6.25 MG, BI (6.25 MG  TABLET)
     Route: 048
     Dates: start: 20230503
  7. DIAZEPAM [Concomitant]
     Active Substance: DIAZEPAM
     Indication: Product used for unknown indication
     Dosage: 10 MG, PRN (RECTAL GEL 10 MG)
     Route: 054
     Dates: start: 20230503
  8. ELIQUIS [Concomitant]
     Active Substance: APIXABAN
     Indication: Product used for unknown indication
     Dosage: 5 MG, BID (TABLET 5 MG)
     Route: 048
     Dates: start: 20230626
  9. ETOPOSIDE [Concomitant]
     Active Substance: ETOPOSIDE
     Indication: Product used for unknown indication
     Dosage: 500 MG/25 ML SOLUTION, AS DIRECTED
     Route: 042
     Dates: start: 20240301
  10. EZETIMIBE [Concomitant]
     Active Substance: EZETIMIBE
     Indication: Product used for unknown indication
     Dosage: 10 MG, QD (TABLET 10 MG)
     Route: 048
     Dates: start: 20230503
  11. LEVETIRACETAM [Concomitant]
     Active Substance: LEVETIRACETAM
     Indication: Product used for unknown indication
     Dosage: 500 MG, BID (TABLET 500 MG)
     Route: 048
     Dates: start: 20230503
  12. MELATONIN [Concomitant]
     Active Substance: MELATONIN
     Indication: Product used for unknown indication
     Dosage: 3 MG, PRN (TABLET 3 MG)
     Route: 048
     Dates: start: 20230503
  13. VITAMINS [Concomitant]
     Active Substance: VITAMINS
     Indication: Product used for unknown indication
     Dosage: 1 DOSAGE FORM, QD (CAPSULES)
     Route: 048
     Dates: start: 20230503
  14. NAYZILAM [Concomitant]
     Active Substance: MIDAZOLAM
     Indication: Product used for unknown indication
     Dosage: 5 MG/0.1ML SOLUTION, AS NEEDED
     Route: 045
     Dates: start: 20230503
  15. NIFEDIPINE [Concomitant]
     Active Substance: NIFEDIPINE
     Indication: Product used for unknown indication
     Dosage: 60 MG, QD (TABLET EXTENDED)
     Route: 048
     Dates: start: 20230503
  16. NITROGLYCERIN [Concomitant]
     Active Substance: NITROGLYCERIN
     Indication: Product used for unknown indication
     Dosage: 0.4 MG, PRN (TABLET)
     Route: 060
     Dates: start: 20230503
  17. ONDANSETRON HYDROCHLORIDE [Concomitant]
     Active Substance: ONDANSETRON HYDROCHLORIDE
     Indication: Product used for unknown indication
     Dosage: 8 MG, PRN (TABLET 8 MG)
     Route: 048
     Dates: start: 20230503
  18. OXYCODONE HYDROCHLORIDE [Concomitant]
     Active Substance: OXYCODONE HYDROCHLORIDE
     Indication: Product used for unknown indication
     Dosage: 5 MG, PRN (TABLET 5 MG)
     Route: 048
     Dates: start: 20230503
  19. POLYETHYLENE GLYCOL 3350 [Concomitant]
     Active Substance: POLYETHYLENE GLYCOL 3350
     Indication: Product used for unknown indication
     Dosage: 17 GRAMS, AS NEEDED (PACKET)
     Route: 048
     Dates: start: 20230503
  20. PROCHLORPERAZINE MALEATE [Concomitant]
     Active Substance: PROCHLORPERAZINE MALEATE
     Indication: Product used for unknown indication
     Dosage: 10 MG, PRN (TABLET)
     Route: 048
     Dates: start: 20230503
  21. SENNOSIDES [Concomitant]
     Active Substance: SENNOSIDES
     Indication: Product used for unknown indication
     Dosage: 8.6 MG, PRN (TABLET 8.6 MG)
     Route: 048
     Dates: start: 20230503
  22. SPIRONOLACTONE [Concomitant]
     Active Substance: SPIRONOLACTONE
     Indication: Product used for unknown indication
     Dosage: 25 MG, QD (TABLET 25 MG)
     Route: 048
     Dates: start: 20230503
  23. TECENTRIQ [Concomitant]
     Active Substance: ATEZOLIZUMAB
     Indication: Product used for unknown indication
     Dosage: 840 MG/14 ML SOLUTION, ONE TIME
     Route: 042
     Dates: start: 20240301
  24. UREA [Concomitant]
     Active Substance: UREA
     Indication: Product used for unknown indication
     Dosage: 2 DOSAGE FORM, BID (POWDER)
     Route: 048
     Dates: start: 20240515

REACTIONS (2)
  - Small cell lung cancer [Fatal]
  - Renal failure [Not Recovered/Not Resolved]

NARRATIVE: CASE EVENT DATE: 20241001
